FAERS Safety Report 5941340-4 (Version None)
Quarter: 2008Q4

REPORT INFORMATION
  Report Type: 
  Country: None (occurrence: None)
  Receive Date: 20081104
  Receipt Date: 20081104
  Transmission Date: 20090506
  Serious: Yes (Hospitalization)
  Sender: FDA-Public Use
  Company Number: None

PATIENT
  Age: 42 Year
  Sex: Male
  Weight: 78 kg

DRUGS (1)
  1. AZITHROMYCIN [Suspect]

REACTIONS (3)
  - CONJUNCTIVITIS INFECTIVE [None]
  - DEHYDRATION [None]
  - STEVENS-JOHNSON SYNDROME [None]
